FAERS Safety Report 10530367 (Version 1)
Quarter: 2014Q4

REPORT INFORMATION
  Report Type: Spontaneous
  Country: US (occurrence: None)
  Receive Date: 20141020
  Receipt Date: 20141020
  Transmission Date: 20150528
  Serious: Yes (Disabling)
  Sender: FDA-Public Use
  Company Number: None

PATIENT
  Age: 59 Year
  Sex: Male
  Weight: 81.65 kg

DRUGS (1)
  1. LEVAQUIN [Suspect]
     Active Substance: LEVOFLOXACIN
     Indication: PNEUMONIA
     Dosage: 7 ONCE DAILY TAKEN BY MOUTH
     Route: 048
     Dates: start: 20140701, end: 20140707

REACTIONS (4)
  - Musculoskeletal disorder [None]
  - Muscle fatigue [None]
  - Impaired work ability [None]
  - Gait disturbance [None]

NARRATIVE: CASE EVENT DATE: 20140701
